FAERS Safety Report 25717440 (Version 2)
Quarter: 2025Q4

REPORT INFORMATION
  Report Type: Spontaneous
  Country: US (occurrence: US)
  Receive Date: 20250822
  Receipt Date: 20251019
  Transmission Date: 20260117
  Serious: No
  Sender: SANOFI AVENTIS
  Company Number: US-SA-2025SA249422

PATIENT
  Age: 56 Year
  Sex: Female

DRUGS (2)
  1. DUPIXENT [Suspect]
     Active Substance: DUPILUMAB
     Indication: Dermatitis allergic
     Dosage: 300 MG, QOW
     Route: 058
     Dates: start: 202505
  2. CEPHALEXIN [Suspect]
     Active Substance: CEPHALEXIN
     Dosage: UNK
     Dates: start: 20250926, end: 20251009

REACTIONS (4)
  - Localised infection [Unknown]
  - Diarrhoea [Unknown]
  - Rash [Unknown]
  - Incorrect dose administered [Unknown]

NARRATIVE: CASE EVENT DATE: 20250101
